FAERS Safety Report 10648571 (Version 1)
Quarter: 2014Q4

REPORT INFORMATION
  Report Type: Spontaneous
  Country: US (occurrence: None)
  Receive Date: 20141210
  Receipt Date: 20141210
  Transmission Date: 20150529
  Serious: Yes (Other)
  Sender: FDA-Public Use
  Company Number: 2014SA166423

PATIENT
  Age: 71 Year
  Sex: Male

DRUGS (1)
  1. ASPERCREME HEAT [Suspect]
     Active Substance: MENTHOL
     Indication: ARTHRALGIA

REACTIONS (4)
  - Skin burning sensation [None]
  - Erythema [None]
  - Pain [None]
  - Product odour abnormal [None]

NARRATIVE: CASE EVENT DATE: 20141124
